FAERS Safety Report 14733864 (Version 2)
Quarter: 2018Q2

REPORT INFORMATION
  Report Type: Spontaneous
  Country: US (occurrence: US)
  Receive Date: 20180409
  Receipt Date: 20180612
  Transmission Date: 20180711
  Serious: No
  Sender: FDA-Public Use
  Company Number: US-GLAXOSMITHKLINE-US2018054742

PATIENT
  Sex: Female

DRUGS (2)
  1. ABREVA [Suspect]
     Active Substance: DOCOSANOL
     Indication: HERPES VIRUS INFECTION
     Dosage: UNK, USED 5 TIMES A DAY
  2. ABREVA [Suspect]
     Active Substance: DOCOSANOL
     Dosage: UNK, USED 5 TIMES A DAY

REACTIONS (2)
  - Product quality issue [Unknown]
  - Drug ineffective [Unknown]
